FAERS Safety Report 7535197-8 (Version None)
Quarter: 2011Q2

REPORT INFORMATION
  Report Type: 
  Country: None (occurrence: None)
  Receive Date: 20110609
  Receipt Date: 20110526
  Transmission Date: 20111010
  Serious: Yes (Hospitalization)
  Sender: FDA-Public Use
  Company Number: PHHY2011FR22463

PATIENT
  Sex: Male
  Weight: 112 kg

DRUGS (4)
  1. MYCOPHENOLIC ACID [Suspect]
     Indication: RENAL TRANSPLANT
     Dosage: 1080 MG DAILY
     Dates: start: 20100820
  2. NEORAL [Suspect]
     Indication: RENAL TRANSPLANT
     Dosage: 275 MG DAILY
     Dates: start: 20100820
  3. RAMIPRIL [Concomitant]
     Dosage: 5 MG, UNK
  4. ACETAMINOPHEN [Concomitant]
     Dosage: 1 G, QD
     Dates: start: 20100819

REACTIONS (3)
  - BILIARY COLIC [None]
  - ABDOMINAL PAIN UPPER [None]
  - CHOLELITHIASIS MIGRATION [None]
